FAERS Safety Report 12356661 (Version 1)
Quarter: 2016Q2

REPORT INFORMATION
  Report Type: Spontaneous
  Country: CN (occurrence: CN)
  Receive Date: 20160511
  Receipt Date: 20160511
  Transmission Date: 20160815
  Serious: Yes (Other)
  Sender: FDA-Public Use
  Company Number: CN-OTSUKA-2015_001486

PATIENT
  Sex: Female

DRUGS (3)
  1. CARBOPLATIN. [Suspect]
     Active Substance: CARBOPLATIN
     Indication: OVARIAN CANCER
     Dosage: AREA UNDER CURVE=5
     Route: 065
  2. DACOGEN [Suspect]
     Active Substance: DECITABINE
     Indication: OVARIAN CANCER
     Dosage: 7 MG/M2, FOR 30 MINUTES OVER 5 CONSECUTIVE DAYS
     Route: 042
  3. TAXOL [Suspect]
     Active Substance: PACLITAXEL
     Indication: OVARIAN CANCER
     Dosage: 135 MG/M2, UNK
     Route: 065

REACTIONS (15)
  - Neutropenia [Recovered/Resolved]
  - Febrile neutropenia [Recovered/Resolved]
  - Nausea [Recovered/Resolved]
  - Platelet count abnormal [Recovered/Resolved]
  - Haemoglobin abnormal [Recovered/Resolved]
  - Diarrhoea [Recovered/Resolved]
  - Vomiting [Recovered/Resolved]
  - Stomatitis [Unknown]
  - Product use issue [Unknown]
  - Decreased appetite [Unknown]
  - Hypersensitivity [Unknown]
  - Dizziness [Unknown]
  - Constipation [Recovered/Resolved]
  - Fatigue [Unknown]
  - Pyrexia [Unknown]
